FAERS Safety Report 24912046 (Version 1)
Quarter: 2025Q1

REPORT INFORMATION
  Report Type: Spontaneous
  Country: US (occurrence: US)
  Receive Date: 20250131
  Receipt Date: 20250131
  Transmission Date: 20250409
  Serious: No
  Sender: SANOFI AVENTIS
  Company Number: US-SA-2025SA030362

PATIENT
  Sex: Female
  Weight: 71.36 kg

DRUGS (1)
  1. DUPIXENT [Suspect]
     Active Substance: DUPILUMAB
     Indication: Dermatitis atopic
     Dosage: INJECT 300 MG UNDER THE SKINEVERY 2 WEEKS
     Route: 058

REACTIONS (2)
  - Weight increased [Unknown]
  - Alopecia [Unknown]
